FAERS Safety Report 11334400 (Version 1)
Quarter: 2015Q3

REPORT INFORMATION
  Report Type: Report from Study
  Country: US (occurrence: US)
  Receive Date: 20150804
  Receipt Date: 20150804
  Transmission Date: 20151125
  Serious: Yes (Death, Hospitalization, Other)
  Sender: FDA-Public Use
  Company Number: US-BRISTOL-MYERS SQUIBB COMPANY-BMS-2015-050286

PATIENT
  Age: 58 Year
  Sex: Female
  Weight: 49 kg

DRUGS (2)
  1. CETUXIMAB [Suspect]
     Active Substance: CETUXIMAB
     Indication: ADENOCARCINOMA OF COLON
     Dosage: 500 MG/KG, Q2WK
     Route: 042
     Dates: start: 20150417, end: 20150701
  2. IRINOTECAN [Suspect]
     Active Substance: IRINOTECAN
     Indication: ADENOCARCINOMA OF COLON
     Dosage: 270 MG, Q2WK
     Route: 042
     Dates: start: 20150417, end: 20150701

REACTIONS (3)
  - Large intestinal obstruction [Fatal]
  - Septic shock [Unknown]
  - Hypotension [Unknown]

NARRATIVE: CASE EVENT DATE: 20150710
